FAERS Safety Report 5537714-6 (Version None)
Quarter: 2007Q4

REPORT INFORMATION
  Report Type: 
  Country: None (occurrence: None)
  Receive Date: 20071207
  Receipt Date: 20071128
  Transmission Date: 20080405
  Serious: Yes (Other)
  Sender: FDA-Public Use
  Company Number: US-JNJFOC-20071110608

PATIENT
  Sex: Female
  Weight: 56.7 kg

DRUGS (2)
  1. FENTANYL TRANSDERMAL SYSTEM [Suspect]
     Indication: NEURALGIA
     Route: 062
  2. TRILEPTAL [Suspect]
     Indication: NEURALGIA
     Route: 048

REACTIONS (5)
  - BLOOD PRESSURE DIASTOLIC DECREASED [None]
  - BURNING SENSATION [None]
  - CHEST DISCOMFORT [None]
  - CHEST PAIN [None]
  - MUSCLE TIGHTNESS [None]
